FAERS Safety Report 7590982-1 (Version None)
Quarter: 2011Q3

REPORT INFORMATION
  Report Type: 
  Country: None (occurrence: None)
  Receive Date: 20110705
  Receipt Date: 20110701
  Transmission Date: 20111222
  Serious: Yes (Life-Threatening, Hospitalization, Disabling, Other)
  Sender: FDA-Public Use
  Company Number: PHHY2011FR55481

PATIENT
  Sex: Male

DRUGS (4)
  1. TASIGNA [Suspect]
     Indication: CHRONIC MYELOID LEUKAEMIA
     Dosage: 400 MG, BID
     Route: 048
     Dates: start: 20060801, end: 20110519
  2. IBUPROFEN [Suspect]
     Indication: ARTHRALGIA
     Dates: end: 20110501
  3. LERCANIDIPINE [Concomitant]
     Dates: start: 20101101, end: 20110201
  4. TASIGNA [Suspect]
     Dosage: UNK
     Route: 048
     Dates: start: 20110601, end: 20110607

REACTIONS (19)
  - VERTIGO [None]
  - HEADACHE [None]
  - TACHYCARDIA [None]
  - CAROTID ARTERY OCCLUSION [None]
  - TEMPORAL ARTERITIS [None]
  - VISUAL IMPAIRMENT [None]
  - VERTEBRAL ARTERY OCCLUSION [None]
  - VISION BLURRED [None]
  - HYPOAESTHESIA [None]
  - ALEXIA [None]
  - NECK PAIN [None]
  - COUGH [None]
  - CEREBRAL INFARCTION [None]
  - CEREBRAL ISCHAEMIA [None]
  - CAROTID ARTERY THROMBOSIS [None]
  - ATAXIA [None]
  - CAROTID ARTERY STENOSIS [None]
  - CEREBRAL ARTERY STENOSIS [None]
  - OPTIC NEUROPATHY [None]
